FAERS Safety Report 10529254 (Version 1)
Quarter: 2014Q4

REPORT INFORMATION
  Report Type: Spontaneous
  Country: CH (occurrence: CH)
  Receive Date: 20141020
  Receipt Date: 20141020
  Transmission Date: 20150528
  Serious: Yes (Hospitalization)
  Sender: FDA-Public Use
  Company Number: CH-ELI_LILLY_AND_COMPANY-CH201410003791

PATIENT
  Age: 76 Year
  Sex: Male
  Weight: 100 kg

DRUGS (8)
  1. CYMBALTA [Suspect]
     Active Substance: DULOXETINE HYDROCHLORIDE
     Indication: PRODUCT USED FOR UNKNOWN INDICATION
     Dosage: 1 DF, UNKNOWN
     Route: 048
  2. CRESTOR [Concomitant]
     Active Substance: ROSUVASTATIN CALCIUM
     Dosage: 20 MG, QD
     Route: 048
  3. CYMBALTA [Suspect]
     Active Substance: DULOXETINE HYDROCHLORIDE
     Dosage: 30 MG, UNKNOWN
     Route: 048
  4. METFORMIN [Concomitant]
     Active Substance: METFORMIN HYDROCHLORIDE
     Dosage: 850 MG, TID
     Route: 048
  5. VICTOZA [Concomitant]
     Active Substance: LIRAGLUTIDE
     Dosage: 1 DF, QD
     Route: 058
  6. VALDOXAN [Suspect]
     Active Substance: AGOMELATINE
     Indication: PRODUCT USED FOR UNKNOWN INDICATION
     Dosage: 25 MG, QD
     Route: 048
     Dates: start: 201408, end: 201408
  7. PANTOZOL [Concomitant]
     Active Substance: PANTOPRAZOLE SODIUM
     Dosage: 40 MG, QD
     Route: 048
  8. DUODART [Concomitant]
     Active Substance: DUTASTERIDE\TAMSULOSIN
     Dosage: 1 DF, QD
     Route: 048

REACTIONS (5)
  - Orthostatic hypotension [Recovered/Resolved]
  - Cognitive disorder [Recovered/Resolved]
  - Depression [Recovered/Resolved]
  - Presyncope [Recovered/Resolved]
  - Cerebellar syndrome [Recovered/Resolved]

NARRATIVE: CASE EVENT DATE: 201408
